FAERS Safety Report 25968681 (Version 5)
Quarter: 2025Q4

REPORT INFORMATION
  Report Type: Spontaneous
  Country: EU (occurrence: EU)
  Receive Date: 20251028
  Receipt Date: 20251126
  Transmission Date: 20260119
  Serious: Yes (Death, Life-Threatening, Hospitalization, Other)
  Sender: AUROBINDO
  Company Number: EU-AUROBINDO-AUR-APL-2025-053063

PATIENT
  Age: 26 Year
  Sex: Female
  Weight: 50 kg

DRUGS (16)
  1. IBUPROFEN [Suspect]
     Active Substance: IBUPROFEN
     Indication: Suicidal ideation
     Dosage: 25200 MILLIGRAM,504 MG/KG
     Route: 065
  2. ASPIRIN [Suspect]
     Active Substance: ASPIRIN
     Indication: Suicidal ideation
     Dosage: 5000 MILLIGRAM,100 MG/KG
     Route: 065
  3. OLANZAPINE [Suspect]
     Active Substance: OLANZAPINE
     Indication: Serotonin syndrome
     Dosage: 10 MILLIGRAM, ONCE A DAY
     Route: 065
  4. PAROXETINE [Suspect]
     Active Substance: PAROXETINE
     Indication: Suicidal ideation
     Dosage: 4000 MILLIGRAM,80  MG/KG
     Route: 065
  5. ACETAMINOPHEN [Suspect]
     Active Substance: ACETAMINOPHEN
     Indication: Suicidal ideation
     Dosage: 8000 MILLIGRAM,160  MG/KG
     Route: 065
  6. MELATONIN [Suspect]
     Active Substance: MELATONIN
     Indication: Suicidal ideation
     Dosage: 63 MILLIGRAM/KILOGRAM, 3150 MG
     Route: 065
  7. AGOMELATINE [Suspect]
     Active Substance: AGOMELATINE
     Indication: Product used for unknown indication
     Dosage: 3150 MILLIGRAM
     Route: 065
  8. CAFFEINE [Suspect]
     Active Substance: CAFFEINE
     Indication: Suicidal ideation
     Dosage: 1000 MILLIGRAM,20 MG/KG
     Route: 065
  9. SUFENTANIL [Concomitant]
     Active Substance: SUFENTANIL
     Indication: Sedative therapy
     Dosage: REDUCED
     Route: 065
  10. DEXAMETHASONE [Concomitant]
     Active Substance: DEXAMETHASONE
     Indication: Acute respiratory distress syndrome
     Route: 065
  11. PREDNISOLONE [Concomitant]
     Active Substance: PREDNISOLONE
     Indication: Acute respiratory distress syndrome
     Route: 065
  12. OLANZAPINE [Concomitant]
     Active Substance: OLANZAPINE
     Indication: Serotonin syndrome
     Dosage: 10 MILLIGRAM, ONCE A DAY
     Route: 065
  13. ACETYLCYSTEINE [Concomitant]
     Active Substance: ACETYLCYSTEINE
     Indication: Overdose
     Route: 065
  14. MIDAZOLAM [Concomitant]
     Active Substance: MIDAZOLAM
     Indication: Sedative therapy
     Dosage: REDUCED
     Route: 065
  15. MEROPENEM [Concomitant]
     Active Substance: MEROPENEM
     Indication: Evidence based treatment
     Route: 065
  16. AMPICILLIN SODIUM\SULBACTAM SODIUM [Concomitant]
     Active Substance: AMPICILLIN SODIUM\SULBACTAM SODIUM
     Indication: Evidence based treatment
     Route: 065

REACTIONS (22)
  - Acute respiratory distress syndrome [Fatal]
  - Serotonin syndrome [Fatal]
  - Completed suicide [Fatal]
  - Pneumonia aspiration [Fatal]
  - Respiratory failure [Fatal]
  - Clonus [Fatal]
  - Delirium [Fatal]
  - Agitation [Fatal]
  - Intentional overdose [Fatal]
  - Toxicity to various agents [Fatal]
  - Drug ineffective [Fatal]
  - Tachycardia [Fatal]
  - Disorientation [Fatal]
  - Mydriasis [Fatal]
  - Somnolence [Fatal]
  - Hypotension [Fatal]
  - Lung infiltration [Fatal]
  - Pyrexia [Fatal]
  - Lividity [Fatal]
  - Tracheal injury [Fatal]
  - Bezoar [Recovered/Resolved]
  - Cyanosis [Unknown]
